FAERS Safety Report 9419187 (Version 1)
Quarter: 2013Q3

REPORT INFORMATION
  Report Type: Spontaneous
  Country: FR (occurrence: FR)
  Receive Date: 20130725
  Receipt Date: 20130725
  Transmission Date: 20140515
  Serious: Yes (Hospitalization)
  Sender: FDA-Public Use
  Company Number: FR-ROCHE-1252228

PATIENT
  Age: 99 Year
  Sex: Female
  Weight: 32 kg

DRUGS (5)
  1. ROCEPHINE [Suspect]
     Indication: URINARY TRACT INFECTION
     Route: 042
     Dates: start: 20130404, end: 20130408
  2. PREVISCAN (FRANCE) [Suspect]
     Indication: PRODUCT USED FOR UNKNOWN INDICATION
     Route: 048
     Dates: end: 20130406
  3. CIFLOX (FRANCE) [Suspect]
     Indication: PRODUCT USED FOR UNKNOWN INDICATION
     Route: 048
     Dates: start: 20130403, end: 20130408
  4. INEXIUM [Concomitant]
  5. BACTRIM [Concomitant]
     Route: 065

REACTIONS (1)
  - International normalised ratio increased [Recovered/Resolved]
